FAERS Safety Report 16458230 (Version 1)
Quarter: 2019Q2

REPORT INFORMATION
  Report Type: Spontaneous
  Country: JP (occurrence: JP)
  Receive Date: 20190620
  Receipt Date: 20190620
  Transmission Date: 20190711
  Serious: Yes (Other)
  Sender: FDA-Public Use
  Company Number: JP-UCBSA-2019025643

PATIENT
  Age: 72 Year
  Sex: Female

DRUGS (2)
  1. NEUPRO [Suspect]
     Active Substance: ROTIGOTINE
     Indication: PARKINSON^S DISEASE
     Dosage: STRENGTH:1MG/24HOURS
     Route: 062
     Dates: start: 201701
  2. NEUPRO [Suspect]
     Active Substance: ROTIGOTINE
     Dosage: 8MG DAILY; STRENGTH:1MG/24HOURS
     Route: 062
     Dates: start: 201903, end: 2019

REACTIONS (1)
  - Persecutory delusion [Recovered/Resolved]

NARRATIVE: CASE EVENT DATE: 20190312
